FAERS Safety Report 4968777-4 (Version None)
Quarter: 2006Q2

REPORT INFORMATION
  Report Type: 
  Country: None (occurrence: None)
  Receive Date: 20060411
  Receipt Date: 20060327
  Transmission Date: 20061013
  Serious: Yes (Other)
  Sender: FDA-Public Use
  Company Number: CA-JNJFOC-20051203668

PATIENT
  Sex: Male

DRUGS (6)
  1. TOPAMAX [Suspect]
  2. VALPROIC ACID [Concomitant]
  3. VALPROIC ACID [Concomitant]
  4. VALPROIC ACID [Concomitant]
  5. VALPROIC ACID [Concomitant]
  6. VALPROIC ACID [Concomitant]
     Indication: EPILEPSY

REACTIONS (4)
  - DIARRHOEA [None]
  - FAILURE TO THRIVE [None]
  - UPPER RESPIRATORY TRACT INFECTION [None]
  - WEIGHT DECREASED [None]
